FAERS Safety Report 9324478 (Version 2)
Quarter: 2013Q2

REPORT INFORMATION
  Report Type: Spontaneous
  Country: DK (occurrence: DK)
  Receive Date: 20130531
  Receipt Date: 20130627
  Transmission Date: 20140414
  Serious: Yes (Other)
  Sender: FDA-Public Use
  Company Number: DK-PFIZER INC-2013162501

PATIENT
  Age: 77 Year
  Sex: Male
  Weight: 73 kg

DRUGS (1)
  1. XALATAN [Suspect]
     Indication: GLAUCOMA
     Dosage: 1 DROP IN RIGHT EYE EVERY EVENING, STRENGTH: 50 MICROGRAM PER ML
     Route: 050

REACTIONS (2)
  - Age-related macular degeneration [Not Recovered/Not Resolved]
  - Visual acuity reduced [Not Recovered/Not Resolved]
